FAERS Safety Report 7552284-9 (Version None)
Quarter: 2011Q2

REPORT INFORMATION
  Report Type: 
  Country: None (occurrence: None)
  Receive Date: 20110616
  Receipt Date: 20050216
  Transmission Date: 20111010
  Serious: Yes (Hospitalization)
  Sender: FDA-Public Use
  Company Number: PHHO2005JP02969

PATIENT
  Sex: Female
  Weight: 52 kg

DRUGS (2)
  1. DIOVAN [Suspect]
     Dosage: 80 MG, QD
     Route: 048
     Dates: start: 20031111
  2. NORVASC [Concomitant]
     Dates: start: 20031111

REACTIONS (3)
  - HAEMATOMA [None]
  - HEMIPLEGIA [None]
  - CEREBRAL HAEMORRHAGE [None]
